FAERS Safety Report 10062040 (Version 3)
Quarter: 2014Q2

REPORT INFORMATION
  Report Type: Report from Study
  Country: US (occurrence: US)
  Receive Date: 20140407
  Receipt Date: 20140519
  Transmission Date: 20141212
  Serious: Yes (Life-Threatening, Hospitalization)
  Sender: FDA-Public Use
  Company Number: US-SA-2014SA022121

PATIENT
  Age: 74 Year
  Sex: Male
  Weight: 88.4 kg

DRUGS (4)
  1. CABAZITAXEL [Suspect]
     Indication: PROSTATE CANCER METASTATIC
     Route: 042
     Dates: start: 20140124, end: 20140124
  2. CABAZITAXEL [Suspect]
     Indication: PROSTATE CANCER METASTATIC
     Route: 042
     Dates: start: 20140307, end: 20140307
  3. PREDNISONE [Concomitant]
     Indication: PROSTATE CANCER
     Route: 048
     Dates: start: 201011
  4. DEXAMETHASONE [Concomitant]
     Indication: PREMEDICATION
     Route: 048
     Dates: start: 20140307, end: 20140307

REACTIONS (5)
  - Atrial fibrillation [Not Recovered/Not Resolved]
  - Hypotension [Unknown]
  - Febrile neutropenia [Unknown]
  - Cholecystitis [Not Recovered/Not Resolved]
  - Tachycardia [Not Recovered/Not Resolved]
